FAERS Safety Report 11025089 (Version 1)
Quarter: 2015Q2

REPORT INFORMATION
  Report Type: Spontaneous
  Country: US (occurrence: None)
  Receive Date: 20150413
  Receipt Date: 20150413
  Transmission Date: 20150821
  Serious: No
  Sender: FDA-Public Use
  Company Number: None

PATIENT
  Age: 58 Year
  Sex: Female

DRUGS (1)
  1. GILENYA [Suspect]
     Active Substance: FINGOLIMOD HYDROCHLORIDE
     Indication: MULTIPLE SCLEROSIS
     Dosage: CAP
     Route: 048
     Dates: start: 20150212

REACTIONS (3)
  - Drug ineffective [None]
  - Visual impairment [None]
  - Mobility decreased [None]

NARRATIVE: CASE EVENT DATE: 20150401
